FAERS Safety Report 17494239 (Version 1)
Quarter: 2020Q1

REPORT INFORMATION
  Report Type: Spontaneous
  Country: US (occurrence: US)
  Receive Date: 20200303
  Receipt Date: 20200303
  Transmission Date: 20200409
  Serious: No
  Sender: FDA-Public Use
  Company Number: US-AMNEAL PHARMACEUTICALS-2019-AMRX-01909

PATIENT
  Sex: Male
  Weight: 45 kg

DRUGS (1)
  1. RYTARY [Suspect]
     Active Substance: CARBIDOPA\LEVODOPA
     Indication: PARKINSON^S DISEASE
     Dosage: 2 CAPSULES, EVERY 4HR
     Route: 048
     Dates: end: 201908

REACTIONS (5)
  - Unresponsive to stimuli [Unknown]
  - Weight abnormal [Unknown]
  - Dysarthria [Unknown]
  - General physical health deterioration [Unknown]
  - Prescribed overdose [Unknown]
